FAERS Safety Report 5578971-X (Version None)
Quarter: 2008Q1

REPORT INFORMATION
  Report Type: 
  Country: None (occurrence: None)
  Receive Date: 20080102
  Receipt Date: 20071219
  Transmission Date: 20080703
  Serious: Yes (Hospitalization)
  Sender: FDA-Public Use
  Company Number: JP-BAYER-200710410BYL

PATIENT
  Age: 70 Year
  Sex: Female

DRUGS (4)
  1. ASPIRIN [Suspect]
     Indication: CEREBRAL INFARCTION
     Dosage: TOTAL DAILY DOSE: 100 MG  UNIT DOSE: 100 MG
     Route: 048
     Dates: start: 20060609, end: 20070308
  2. PANALDINE [Suspect]
     Indication: CEREBRAL INFARCTION
     Dosage: TOTAL DAILY DOSE: 200 MG
     Route: 048
     Dates: start: 20070206, end: 20070308
  3. DILTIAZEM HYDROCHLORIDE [Concomitant]
     Indication: HYPERTENSION
     Dosage: TOTAL DAILY DOSE: 100 MG
     Route: 048
     Dates: start: 20060424
  4. NU-LOTAN [Concomitant]
     Indication: HYPERTENSION
     Dosage: TOTAL DAILY DOSE: 25 MG
     Route: 048
     Dates: start: 20070205

REACTIONS (4)
  - COLITIS COLLAGENOUS [None]
  - DIARRHOEA [None]
  - HYPOPROTEINAEMIA [None]
  - MELAENA [None]
